FAERS Safety Report 9931560 (Version 1)
Quarter: 2014Q1

REPORT INFORMATION
  Report Type: Spontaneous
  Country: NL (occurrence: NL)
  Receive Date: 20140228
  Receipt Date: 20140228
  Transmission Date: 20141002
  Serious: Yes (Hospitalization)
  Sender: FDA-Public Use
  Company Number: NL-BAYER-2014-027036

PATIENT
  Age: 76 Year
  Sex: Female
  Weight: 65 kg

DRUGS (8)
  1. NIFEDIPINE [Suspect]
     Indication: HYPERTENSION
     Dosage: 10 MG, QD
     Dates: start: 20140205, end: 20140207
  2. OMEPRAZOL [Concomitant]
     Dosage: 20 MG, QD
  3. DIOVAN [Concomitant]
     Dosage: 80 MG, QD
  4. CARBASALATE CALCIUM [Concomitant]
     Dosage: 100 MG, QD
  5. PERSANTIN RETARD [Concomitant]
     Dosage: 200 MG, QD
     Dates: start: 20140205, end: 20140207
  6. PARACETAMOL [Concomitant]
     Dosage: 1000 MG, QID
  7. LIPITOR [Concomitant]
     Dosage: 10 MG, QD
  8. SUMATRIPTAN SUCCINATE [Concomitant]
     Dosage: 50 MG, PRN

REACTIONS (2)
  - Cerebrovascular accident [Recovered/Resolved]
  - Orthostatic hypotension [Recovered/Resolved]
